FAERS Safety Report 6557587-2 (Version None)
Quarter: 2010Q1

REPORT INFORMATION
  Report Type: 
  Country: None (occurrence: None)
  Receive Date: 20100129
  Receipt Date: 20080225
  Transmission Date: 20100710
  Serious: Yes (Other)
  Sender: FDA-Public Use
  Company Number: PHMT2006CA01128

PATIENT
  Sex: Male
  Weight: 115.19 kg

DRUGS (8)
  1. SANDOSTATIN LAR [Suspect]
     Indication: ACROMEGALY
     Dosage: 20 MG, UNK
     Route: 030
     Dates: start: 20031001
  2. SANDOSTATIN LAR [Suspect]
     Dosage: 30 MG, QMO
     Route: 030
     Dates: start: 20031001
  3. ALTACE [Concomitant]
  4. CRESTOR [Concomitant]
  5. MONOCOR [Concomitant]
  6. PLAVIX [Concomitant]
  7. CIALIS [Concomitant]
  8. VIAGRA [Concomitant]

REACTIONS (18)
  - AMAUROSIS FUGAX [None]
  - AMNESIA [None]
  - BLINDNESS TRANSIENT [None]
  - BLOOD PRESSURE DECREASED [None]
  - CONVULSION [None]
  - DIZZINESS [None]
  - EPILEPSY [None]
  - FALL [None]
  - FATIGUE [None]
  - FOAMING AT MOUTH [None]
  - GASTROENTERITIS [None]
  - HYPOAESTHESIA [None]
  - LOSS OF CONSCIOUSNESS [None]
  - MALAISE [None]
  - MYOCLONUS [None]
  - NUCLEAR MAGNETIC RESONANCE IMAGING ABNORMAL [None]
  - PETIT MAL EPILEPSY [None]
  - PITUITARY TUMOUR [None]
